FAERS Safety Report 8153960-X (Version None)
Quarter: 2012Q1

REPORT INFORMATION
  Report Type: 
  Country: None (occurrence: None)
  Receive Date: 20120221
  Receipt Date: 20120221
  Transmission Date: 20120608
  Serious: Yes (Other)
  Sender: FDA-Public Use
  Company Number: None

PATIENT
  Age: 56 Year
  Sex: Female

DRUGS (19)
  1. DEXAMETHASONE [Concomitant]
     Route: 042
  2. AMOXICILLIN-CLAVULANAT, [Concomitant]
  3. VITAMIN D [Concomitant]
  4. HYDROCODONE BITARTRATE AND IBUPROFEN [Concomitant]
  5. AMLODIPINE BESYLATE AND BENAZEPRIL HCL [Concomitant]
  6. SIMVASTATIN [Concomitant]
  7. PROCHLORPERAZINE [Concomitant]
  8. NEOMYCIN-BACITRACIN-POLYMYXIN [Concomitant]
  9. EUCERIN CREAM [Concomitant]
     Route: 061
  10. LOPERAMIDE HCL [Concomitant]
  11. LORAZEPAM [Concomitant]
  12. FAMOTIDINE [Concomitant]
  13. METOPROLOL SUCCINATE [Concomitant]
  14. NEULASTA [Concomitant]
     Route: 051
  15. MAGNESIUM CHLORIDE [Concomitant]
  16. METFORMIN HCL [Concomitant]
  17. NIACIN [Concomitant]
  18. DOCETAXEL [Suspect]
     Indication: BREAST CANCER
     Dosage: 190 MG
     Route: 042
     Dates: start: 20110830, end: 20111130
  19. DIPHENHYDRAMINE HCL [Concomitant]
     Route: 042

REACTIONS (5)
  - PALMAR-PLANTAR ERYTHRODYSAESTHESIA SYNDROME [None]
  - PAIN IN EXTREMITY [None]
  - SKIN EXFOLIATION [None]
  - GAIT DISTURBANCE [None]
  - ARTHRALGIA [None]
